FAERS Safety Report 9851013 (Version 1)
Quarter: 2014Q1

REPORT INFORMATION
  Report Type: Spontaneous
  Country: FI (occurrence: FI)
  Receive Date: 20140128
  Receipt Date: 20140128
  Transmission Date: 20141002
  Serious: Yes (Other)
  Sender: FDA-Public Use
  Company Number: FI-B.I. PHARMACEUTICALS,INC./RIDGEFIELD-2014-BI-02959SF

PATIENT
  Sex: Female

DRUGS (2)
  1. TRAJENTA [Suspect]
     Indication: TYPE 2 DIABETES MELLITUS
     Dosage: 5 MG
     Dates: start: 20131126, end: 20140109
  2. DIFORMIN RETARD [Concomitant]
     Dates: end: 20140109

REACTIONS (2)
  - Cardiac failure [Recovered/Resolved]
  - Oedema [Recovered/Resolved]
